FAERS Safety Report 18336378 (Version 6)
Quarter: 2023Q1

REPORT INFORMATION
  Report Type: Report from Study
  Country: CA (occurrence: CA)
  Receive Date: 20201001
  Receipt Date: 20230301
  Transmission Date: 20230417
  Serious: Yes (Hospitalization)
  Sender: FDA-Public Use
  Company Number: PHHY2017CA183359

PATIENT
  Age: 36 Year
  Sex: Male

DRUGS (4)
  1. SANDOSTATIN LAR DEPOT [Suspect]
     Active Substance: OCTREOTIDE ACETATE
     Indication: Carcinoid tumour
     Dosage: 30 MG, QMO (EVERY 4 WEEKS)
     Route: 030
     Dates: start: 20090707, end: 20120829
  2. SANDOSTATIN LAR DEPOT [Suspect]
     Active Substance: OCTREOTIDE ACETATE
     Dosage: 30 MG, QMO (EVERY 4 WEEKS)
     Route: 030
     Dates: start: 20090707
  3. SANDOSTATIN LAR DEPOT [Suspect]
     Active Substance: OCTREOTIDE ACETATE
     Dosage: UNK
     Route: 065
     Dates: start: 20200615
  4. OCTREOTIDE [Concomitant]
     Active Substance: OCTREOTIDE
     Indication: Carcinoid tumour
     Dosage: UNK UNK, Q2W
     Route: 058
     Dates: start: 20171208, end: 201712

REACTIONS (11)
  - Hypertension [Recovered/Resolved]
  - Dyspnoea [Recovered/Resolved]
  - Chest discomfort [Unknown]
  - Liver disorder [Unknown]
  - Gastrointestinal disorder [Unknown]
  - Blood pressure systolic increased [Unknown]
  - Hepatic mass [Unknown]
  - Device leakage [Unknown]
  - Needle issue [Unknown]
  - Product quality issue [Unknown]
  - Injection site haemorrhage [Unknown]

NARRATIVE: CASE EVENT DATE: 20090701
